FAERS Safety Report 14572024 (Version 3)
Quarter: 2018Q2

REPORT INFORMATION
  Report Type: Spontaneous
  Country: JP (occurrence: JP)
  Receive Date: 20180226
  Receipt Date: 20180509
  Transmission Date: 20180711
  Serious: Yes (Hospitalization, Other)
  Sender: FDA-Public Use
  Company Number: JP-GLAXOSMITHKLINE-JP2018JPN027051

PATIENT
  Age: 10 Year
  Sex: Female
  Weight: 28 kg

DRUGS (11)
  1. SINGULAIR CHEWABLE TABLETS [Concomitant]
     Indication: BRONCHITIS
  2. MAOTO [Concomitant]
     Active Substance: HERBALS
     Indication: UPPER RESPIRATORY TRACT INFLAMMATION
     Dosage: 2.5 G, BID
     Dates: start: 20180210, end: 20180211
  3. SINGULAIR CHEWABLE TABLETS [Concomitant]
     Indication: UPPER RESPIRATORY TRACT INFLAMMATION
     Dosage: 5 MG, QD
     Dates: start: 20180210, end: 20180211
  4. HUSCODE [Concomitant]
     Active Substance: CHLORPHENIRAMINE MALEAT\DIHYDROCODEINE PHOSPHATE\METHYLEPHEDRINE HYDROCHLORIDE, DL-
     Indication: UPPER RESPIRATORY TRACT INFLAMMATION
     Dosage: 2 DF, BID
     Dates: start: 20180210, end: 20180211
  5. HUSCODE [Concomitant]
     Active Substance: CHLORPHENIRAMINE MALEAT\DIHYDROCODEINE PHOSPHATE\METHYLEPHEDRINE HYDROCHLORIDE, DL-
     Indication: BRONCHITIS
  6. RELENZA [Suspect]
     Active Substance: ZANAMIVIR
     Indication: INFLUENZA
     Dosage: 10 MG, BID
     Route: 055
     Dates: start: 20180210, end: 20180214
  7. HOKUNALIN TAPE [Concomitant]
     Active Substance: TULOBUTEROL
     Indication: UPPER RESPIRATORY TRACT INFLAMMATION
     Dosage: 2 MG, QD
     Dates: start: 20180210, end: 20180211
  8. HOKUNALIN TAPE [Concomitant]
     Active Substance: TULOBUTEROL
     Indication: BRONCHITIS
  9. CALONAL TABLET [Concomitant]
     Indication: UPPER RESPIRATORY TRACT INFLAMMATION
     Dosage: 300 MG, QD
     Dates: start: 20180210, end: 20180211
  10. AMBROXOL HYDROCHLORIDE TABLETS [Concomitant]
     Indication: UPPER RESPIRATORY TRACT INFLAMMATION
     Dosage: 15 MG, BID
     Dates: start: 20180210, end: 20180211
  11. AMBROXOL HYDROCHLORIDE TABLETS [Concomitant]
     Indication: BRONCHITIS

REACTIONS (6)
  - Glassy eyes [Recovering/Resolving]
  - Posture abnormal [Recovering/Resolving]
  - Dysstasia [Recovering/Resolving]
  - Encephalopathy [Recovering/Resolving]
  - Abnormal behaviour [Recovered/Resolved]
  - Gait disturbance [Recovering/Resolving]

NARRATIVE: CASE EVENT DATE: 20180213
